FAERS Safety Report 8438257-2 (Version None)
Quarter: 2012Q2

REPORT INFORMATION
  Report Type: 
  Country: None (occurrence: None)
  Receive Date: 20120614
  Receipt Date: 20120612
  Transmission Date: 20120825
  Serious: Yes (Other)
  Sender: FDA-Public Use
  Company Number: GXKR2012DE001971

PATIENT
  Sex: Male

DRUGS (2)
  1. OMEPRAZOLE [Interacting]
     Route: 048
  2. BICALUTAMID 1A PHARMA [Suspect]
     Indication: PROSTATE CANCER METASTATIC
     Dosage: 150 MG, QD
     Route: 048
     Dates: start: 20120405

REACTIONS (2)
  - BLOOD CHROMOGRANIN A INCREASED [None]
  - DRUG INTERACTION [None]
